FAERS Safety Report 9425176 (Version 2)
Quarter: 2013Q3

REPORT INFORMATION
  Report Type: Spontaneous
  Country: US (occurrence: US)
  Receive Date: 20130729
  Receipt Date: 20130829
  Transmission Date: 20140515
  Serious: Yes (Other)
  Sender: FDA-Public Use
  Company Number: US-PFIZER INC-2013216766

PATIENT
  Age: 61 Year
  Sex: Male

DRUGS (1)
  1. ZOLOFT [Suspect]
     Dosage: 50 MG, 1X/DAY

REACTIONS (4)
  - Cardiac disorder [Unknown]
  - Diabetic complication [Unknown]
  - Impaired work ability [Unknown]
  - Malaise [Unknown]
